FAERS Safety Report 6253182-3 (Version None)
Quarter: 2009Q2

REPORT INFORMATION
  Report Type: 
  Country: None (occurrence: None)
  Receive Date: 20090625
  Receipt Date: 20080709
  Transmission Date: 20091009
  Serious: Yes (Other)
  Sender: FDA-Public Use
  Company Number: DSU-2008-01032

PATIENT
  Age: 69 Year
  Sex: Female
  Weight: 62 kg

DRUGS (5)
  1. OLMESARTAN MEDOXOMIL [Suspect]
     Indication: HYPERTENSION
     Dosage: 40 MG (40 MG,QD),PER ORAL
     Route: 048
     Dates: start: 20080201, end: 20080501
  2. BONIVA [Suspect]
     Indication: OSTEOPOROSIS
     Dosage: (3 MG, 1 PER 3 MONTHS), INTRAVENOUS (NOT OTHERWISE SPECIFIED)
     Route: 042
     Dates: start: 20070919, end: 20080319
  3. HYDROCODONE/APAP (PARACETAMOL, HYDROCODONE BITARTRATE) (PARACETAMOL, H [Concomitant]
  4. METOPROLOL ER (METOPROLOL TARTRATE) (100 MILLIGRAM TABLET) (METOPROLOL [Concomitant]
  5. NEXIUM (ESOMEPRAZOLE) (40 MILLIGRAM) (ESOMEPRAZOLE) [Concomitant]

REACTIONS (1)
  - ANGIOEDEMA [None]
